FAERS Safety Report 9055762 (Version 1)
Quarter: 2013Q1

REPORT INFORMATION
  Report Type: Spontaneous
  Country: US (occurrence: US)
  Receive Date: 20130206
  Receipt Date: 20130206
  Transmission Date: 20140127
  Serious: Yes (Other)
  Sender: FDA-Public Use
  Company Number: US-ROCHE-1187456

PATIENT
  Sex: Female

DRUGS (1)
  1. XOLAIR [Suspect]
     Indication: ASTHMA
     Route: 065

REACTIONS (6)
  - Bronchospasm [Unknown]
  - Dyspnoea [Unknown]
  - Injection site pruritus [Unknown]
  - Urticaria [Unknown]
  - Wheezing [Unknown]
  - Injection site swelling [Unknown]
